FAERS Safety Report 19624382 (Version 1)
Quarter: 2021Q3

REPORT INFORMATION
  Report Type: Spontaneous
  Country: US (occurrence: US)
  Receive Date: 20210729
  Receipt Date: 20210729
  Transmission Date: 20211014
  Serious: No
  Sender: FDA-Public Use
  Company Number: US-JNJFOC-20210749034

PATIENT
  Age: 64 Year
  Sex: Male
  Weight: 97.61 kg

DRUGS (1)
  1. TREMFYA [Suspect]
     Active Substance: GUSELKUMAB
     Indication: PRODUCT USED FOR UNKNOWN INDICATION
     Route: 065
     Dates: start: 20210629

REACTIONS (6)
  - Fatigue [Unknown]
  - Hypoaesthesia [Unknown]
  - Balance disorder [Unknown]
  - Dizziness [Unknown]
  - Presyncope [Unknown]
  - Blood pressure decreased [Unknown]
